FAERS Safety Report 5628369-0 (Version None)
Quarter: 2008Q1

REPORT INFORMATION
  Report Type: 
  Country: None (occurrence: None)
  Receive Date: 20080215
  Receipt Date: 20080212
  Transmission Date: 20080703
  Serious: Yes (Life-Threatening, Hospitalization)
  Sender: FDA-Public Use
  Company Number: US-GILEAD-2007-0014663

PATIENT
  Sex: Male

DRUGS (13)
  1. TRUVADA [Suspect]
     Indication: HIV INFECTION
     Route: 048
     Dates: start: 20040608, end: 20070825
  2. KALETRA [Suspect]
     Indication: HIV INFECTION
     Route: 048
  3. PROZAC [Concomitant]
     Route: 048
  4. ATIVAN [Concomitant]
     Route: 048
  5. QUETIAPINE FUMARATE [Concomitant]
     Route: 048
  6. LANSOPRAZOLE [Concomitant]
     Route: 048
  7. TRAZODONE HCL [Concomitant]
     Route: 048
  8. KEPPRA [Concomitant]
     Route: 048
  9. CLONAZEPAM [Concomitant]
     Route: 048
  10. CLONAZEPAM [Concomitant]
     Route: 048
  11. DEPAKOTE [Concomitant]
     Route: 048
  12. ATIVAN [Concomitant]
     Route: 048
  13. LORAZEPAM [Concomitant]
     Route: 048

REACTIONS (16)
  - ACTIVITIES OF DAILY LIVING IMPAIRED [None]
  - ACUTE RESPIRATORY DISTRESS SYNDROME [None]
  - AGGRESSION [None]
  - AGITATION [None]
  - ATRIAL FIBRILLATION [None]
  - CARDIAC ARREST [None]
  - CONFUSIONAL STATE [None]
  - ELECTROMECHANICAL DISSOCIATION [None]
  - HYPOTENSION [None]
  - MENTAL STATUS CHANGES [None]
  - PLEURAL EFFUSION [None]
  - PNEUMONIA ASPIRATION [None]
  - RESPIRATORY ACIDOSIS [None]
  - RESPIRATORY FAILURE [None]
  - SYNCOPE VASOVAGAL [None]
  - TREMOR [None]
